FAERS Safety Report 7362395-9 (Version None)
Quarter: 2011Q1

REPORT INFORMATION
  Report Type: 
  Country: None (occurrence: None)
  Receive Date: 20110318
  Receipt Date: 20110310
  Transmission Date: 20110831
  Serious: Yes (Other)
  Sender: FDA-Public Use
  Company Number: US-AMGEN-USASP2011013711

PATIENT
  Sex: Female

DRUGS (3)
  1. PLAQUENIL [Concomitant]
  2. ENBREL [Suspect]
     Indication: PRODUCT USED FOR UNKNOWN INDICATION
  3. PREDNISONE [Concomitant]

REACTIONS (3)
  - THYROID CANCER [None]
  - MOBILITY DECREASED [None]
  - BACK DISORDER [None]
